FAERS Safety Report 12678902 (Version 1)
Quarter: 2016Q3

REPORT INFORMATION
  Report Type: Spontaneous
  Country: FI (occurrence: FI)
  Receive Date: 20160824
  Receipt Date: 20160824
  Transmission Date: 20161109
  Serious: Yes (Hospitalization)
  Sender: FDA-Public Use
  Company Number: FI-ROCHE-1816203

PATIENT
  Age: 57 Year
  Sex: Male

DRUGS (7)
  1. MABTHERA [Suspect]
     Active Substance: RITUXIMAB
     Indication: GRANULOMATOSIS WITH POLYANGIITIS
     Route: 042
     Dates: start: 20160502
  2. PRIVIGEN [Concomitant]
     Active Substance: HUMAN IMMUNOGLOBULIN G
     Route: 042
     Dates: start: 201605
  3. DEXAMETHASONE. [Concomitant]
     Active Substance: DEXAMETHASONE
     Dosage: INDUCTION TREATMENT ALONGSIDE MABTHERA
     Route: 042
     Dates: start: 20160502
  4. DEXAMETHASONE. [Concomitant]
     Active Substance: DEXAMETHASONE
     Route: 048
     Dates: start: 201605
  5. MABTHERA [Suspect]
     Active Substance: RITUXIMAB
     Route: 042
     Dates: start: 20160518
  6. PRIVIGEN [Concomitant]
     Active Substance: HUMAN IMMUNOGLOBULIN G
     Route: 042
     Dates: start: 201510
  7. DEXAMETHASONE. [Concomitant]
     Active Substance: DEXAMETHASONE
     Route: 048
     Dates: start: 201606

REACTIONS (3)
  - Cerebral infarction [Recovered/Resolved]
  - Pneumonia bacterial [Recovered/Resolved]
  - Pneumocystis jirovecii infection [Recovered/Resolved]

NARRATIVE: CASE EVENT DATE: 20160513
